FAERS Safety Report 9474878 (Version 2)
Quarter: 2016Q1

REPORT INFORMATION
  Report Type: Report from Study
  Country: US (occurrence: US)
  Receive Date: 20130823
  Receipt Date: 20160223
  Transmission Date: 20160526
  Serious: Yes (Hospitalization)
  Sender: FDA-Public Use
  Company Number: US-ROCHE-1264249

PATIENT
  Age: 40 Year
  Sex: Female
  Weight: 49.94 kg

DRUGS (13)
  1. HERCEPTIN [Suspect]
     Active Substance: TRASTUZUMAB
     Indication: BREAST CANCER METASTATIC
     Route: 042
     Dates: start: 20130529, end: 20130702
  2. PERJETA [Suspect]
     Active Substance: PERTUZUMAB
     Indication: METASTASES TO NERVOUS SYSTEM
  3. KADCYLA [Suspect]
     Active Substance: ADO-TRASTUZUMAB EMTANSINE
     Route: 042
  4. NEUPOGEN [Concomitant]
     Active Substance: FILGRASTIM
     Route: 065
  5. CARBOPLATIN. [Concomitant]
     Active Substance: CARBOPLATIN
     Route: 042
     Dates: start: 20130529, end: 20130702
  6. RANITIDINE [Concomitant]
     Active Substance: RANITIDINE\RANITIDINE HYDROCHLORIDE
  7. DEXAMETHASONE. [Concomitant]
     Active Substance: DEXAMETHASONE
  8. PACLITAXEL. [Concomitant]
     Active Substance: PACLITAXEL
     Route: 042
     Dates: start: 20130529, end: 20130702
  9. HERCEPTIN [Suspect]
     Active Substance: TRASTUZUMAB
     Indication: BREAST CANCER
     Route: 042
     Dates: start: 20080101, end: 20080901
  10. HERCEPTIN [Suspect]
     Active Substance: TRASTUZUMAB
     Dosage: ON 12-AUG-2013: CYCLE 2 DAY 1
     Route: 042
  11. KADCYLA [Suspect]
     Active Substance: ADO-TRASTUZUMAB EMTANSINE
     Indication: BREAST CANCER METASTATIC
     Route: 042
     Dates: start: 20130722
  12. PERJETA [Suspect]
     Active Substance: PERTUZUMAB
     Indication: BREAST CANCER FEMALE
     Route: 065
  13. GRANISETRON [Concomitant]
     Active Substance: GRANISETRON
     Route: 042

REACTIONS (25)
  - Eosinophil count increased [Unknown]
  - Blood urea nitrogen/creatinine ratio increased [Unknown]
  - Laboratory test abnormal [Unknown]
  - Blood glucose increased [Unknown]
  - White blood cell count decreased [Unknown]
  - Red blood cell count decreased [Not Recovered/Not Resolved]
  - Blood creatinine decreased [Unknown]
  - Blood alkaline phosphatase increased [Unknown]
  - Full blood count decreased [Recovering/Resolving]
  - Platelet count decreased [Recovering/Resolving]
  - Alanine aminotransferase increased [Unknown]
  - Haematocrit decreased [Unknown]
  - Aspartate aminotransferase increased [Unknown]
  - Basophil count increased [Unknown]
  - Mean cell volume increased [Not Recovered/Not Resolved]
  - Monocyte percentage [Unknown]
  - Neutrophil count increased [Unknown]
  - Blood alkaline phosphatase increased [Unknown]
  - Haemoglobin decreased [Unknown]
  - Mean cell haemoglobin increased [Not Recovered/Not Resolved]
  - Protein total decreased [Unknown]
  - Lymphocyte count increased [Unknown]
  - Drug hypersensitivity [Recovered/Resolved]
  - Infection [Recovering/Resolving]
  - Neutrophil count decreased [Unknown]

NARRATIVE: CASE EVENT DATE: 20130401
